FAERS Safety Report 13001796 (Version 2)
Quarter: 2020Q3

REPORT INFORMATION
  Report Type: Report from Study
  Country: CA (occurrence: CA)
  Receive Date: 20161206
  Receipt Date: 20161213
  Transmission Date: 20201104
  Serious: Yes (Hospitalization)
  Sender: FDA-Public Use
  Company Number: CA-PFIZER INC-2016560338

PATIENT
  Age: 76 Year
  Sex: Male

DRUGS (12)
  1. CISPLATIN. [Suspect]
     Active Substance: CISPLATIN
     Indication: NON-SMALL CELL LUNG CANCER METASTATIC
     Dosage: 153 MG (21 DAY CYCLE)
     Route: 042
     Dates: start: 20160907, end: 20160908
  2. ASA [Concomitant]
     Active Substance: ASPIRIN
     Dates: start: 201512
  3. CLOTRIMAZOLE. [Concomitant]
     Active Substance: CLOTRIMAZOLE
     Dates: start: 20160919
  4. GEMCITABINE HYDROCHLORIDE. [Suspect]
     Active Substance: GEMCITABINE HYDROCHLORIDE
     Indication: NON-SMALL CELL LUNG CANCER METASTATIC
     Dosage: 2185 MG (21 DAY CYCLE)
     Route: 042
     Dates: start: 20160907, end: 20161123
  5. MEDI4736 [Suspect]
     Active Substance: DURVALUMAB
     Indication: NON-SMALL CELL LUNG CANCER METASTATIC
     Dosage: 1125 MG (21 DAY CYCLE)
     Route: 042
     Dates: start: 20160907, end: 20161116
  6. MOMETASONE [Concomitant]
     Active Substance: MOMETASONE
     Dates: start: 2004
  7. CARBOPLATIN. [Suspect]
     Active Substance: CARBOPLATIN
     Indication: NON-SMALL CELL LUNG CANCER METASTATIC
     Dosage: 490 AUC (21 DAY CYCLE)
     Route: 042
     Dates: start: 20160907, end: 20161116
  8. IRBESARTAN. [Concomitant]
     Active Substance: IRBESARTAN
     Route: 065
     Dates: start: 2001
  9. VITAMIN D2 [Concomitant]
     Active Substance: ERGOCALCIFEROL
     Dates: start: 2011
  10. LASIX [Concomitant]
     Active Substance: FUROSEMIDE
     Dates: start: 20161024
  11. TREMELIMUMAB. [Suspect]
     Active Substance: TREMELIMUMAB
     Indication: NON-SMALL CELL LUNG CANCER METASTATIC
     Dosage: 56 MG (21 DAY CYCLE)
     Route: 042
     Dates: start: 20160907, end: 20161116
  12. PANTOPRAZOLE [Concomitant]
     Active Substance: PANTOPRAZOLE
     Route: 065
     Dates: start: 201608

REACTIONS (1)
  - Dyspnoea [Unknown]

NARRATIVE: CASE EVENT DATE: 20161123
